FAERS Safety Report 5529365-4 (Version None)
Quarter: 2007Q4

REPORT INFORMATION
  Report Type: 
  Country: None (occurrence: None)
  Receive Date: 20071129
  Receipt Date: 20071127
  Transmission Date: 20080405
  Serious: Yes (Hospitalization)
  Sender: FDA-Public Use
  Company Number: A0696060A

PATIENT
  Age: 14 Year
  Sex: Female

DRUGS (1)
  1. WELLBUTRIN SR [Suspect]
     Indication: ILL-DEFINED DISORDER
     Dosage: 6000MG SINGLE DOSE
     Route: 048
     Dates: start: 20071125

REACTIONS (5)
  - BLOOD PRESSURE INCREASED [None]
  - HALLUCINATION [None]
  - HEART RATE INCREASED [None]
  - OVERDOSE [None]
  - TREMOR [None]
